FAERS Safety Report 6182682-X (Version None)
Quarter: 2009Q2

REPORT INFORMATION
  Report Type: 
  Country: None (occurrence: None)
  Receive Date: 20090507
  Receipt Date: 20090430
  Transmission Date: 20091009
  Serious: Yes (Hospitalization)
  Sender: FDA-Public Use
  Company Number: A0782808A

PATIENT
  Sex: Female
  Weight: 65 kg

DRUGS (4)
  1. SERETIDE [Suspect]
     Indication: CHRONIC OBSTRUCTIVE PULMONARY DISEASE
     Dosage: 2PUFF TWICE PER DAY
     Route: 055
     Dates: start: 20061101, end: 20090421
  2. SPIRIVA [Concomitant]
     Dosage: 1TAB PER DAY
     Route: 048
     Dates: start: 20061101, end: 20090421
  3. AEROLIN [Concomitant]
     Dosage: 2PUFF TWICE PER DAY
     Route: 055
     Dates: start: 20090421
  4. BALCOR [Concomitant]
     Dates: start: 20090401, end: 20090421

REACTIONS (5)
  - CARDIAC DISORDER [None]
  - DYSPNOEA [None]
  - LUNG INFECTION [None]
  - PNEUMONIA [None]
  - TACHYCARDIA [None]
